FAERS Safety Report 25975896 (Version 1)
Quarter: 2025Q4

REPORT INFORMATION
  Report Type: Spontaneous
  Country: US (occurrence: US)
  Receive Date: 20251029
  Receipt Date: 20251029
  Transmission Date: 20260117
  Serious: Yes (Hospitalization, Other)
  Sender: GILEAD
  Company Number: US-GILEAD-2025-0733732

PATIENT
  Sex: Male
  Weight: 108.84 kg

DRUGS (9)
  1. BIKTARVY [Suspect]
     Active Substance: BICTEGRAVIR SODIUM\EMTRICITABINE\TENOFOVIR ALAFENAMIDE FUMARATE
     Indication: Product used for unknown indication
     Dosage: UNK
     Route: 065
  2. TREPROSTINIL [Suspect]
     Active Substance: TREPROSTINIL
     Indication: Pulmonary arterial hypertension
     Dosage: 29.27 NG/KG/MIN,CONTINUOUS
     Route: 042
  3. MACITENTAN\TADALAFIL [Concomitant]
     Active Substance: MACITENTAN\TADALAFIL
  4. SODIUM CHLORIDE [Concomitant]
     Active Substance: SODIUM CHLORIDE
  5. LASIX [Concomitant]
     Active Substance: FUROSEMIDE
  6. OPSUMIT [Concomitant]
     Active Substance: MACITENTAN
  7. TADALAFIL [Concomitant]
     Active Substance: TADALAFIL
  8. WINREVAIR [Concomitant]
     Active Substance: SOTATERCEPT-CSRK
  9. LEVOTHYROXINE SODIUM [Concomitant]
     Active Substance: LEVOTHYROXINE SODIUM

REACTIONS (1)
  - Pulmonary arterial hypertension [Unknown]
